FAERS Safety Report 7259579-7 (Version None)
Quarter: 2011Q1

REPORT INFORMATION
  Report Type: 
  Country: None (occurrence: None)
  Receive Date: 20110130
  Receipt Date: 20100922
  Transmission Date: 20110831
  Serious: No
  Sender: FDA-Public Use
  Company Number: PR-ABBOTT-10P-131-0672966-00

PATIENT
  Sex: Female

DRUGS (3)
  1. ZYRTEC [Concomitant]
     Indication: SINUSITIS
     Route: 048
  2. HUMIRA [Suspect]
     Indication: PSORIATIC ARTHROPATHY
     Dosage: 1 PEN
     Route: 058
  3. FLONASE [Concomitant]
     Indication: SINUSITIS
     Route: 045

REACTIONS (2)
  - ABDOMINAL PAIN UPPER [None]
  - DYSPEPSIA [None]
